FAERS Safety Report 14293152 (Version 1)
Quarter: 2017Q4

REPORT INFORMATION
  Report Type: Spontaneous
  Country: US (occurrence: US)
  Receive Date: 20171215
  Receipt Date: 20171215
  Transmission Date: 20180321
  Serious: Yes (Other)
  Sender: FDA-Public Use
  Company Number: US-PFIZER INC-2017537955

PATIENT
  Sex: Female

DRUGS (1)
  1. EPIPEN [Suspect]
     Active Substance: EPINEPHRINE
     Indication: ARTHROPOD STING
     Dosage: UNK
     Route: 030

REACTIONS (4)
  - Injury associated with device [Not Recovered/Not Resolved]
  - Sensory loss [Not Recovered/Not Resolved]
  - Product quality issue [Unknown]
  - Accidental exposure to product [Unknown]

NARRATIVE: CASE EVENT DATE: 20171101
